FAERS Safety Report 8956405 (Version 1)
Quarter: 2012Q4

REPORT INFORMATION
  Report Type: 
  Country: US (occurrence: US)
  Receive Date: 20121210
  Receipt Date: 20121210
  Transmission Date: 20130627
  Serious: Yes (Other)
  Sender: FDA-Public Use
  Company Number: US-BAYER-2012-111805

PATIENT
  Age: 26 Year
  Sex: Female
  Weight: 54.42 kg

DRUGS (3)
  1. MIRENA [Suspect]
     Indication: CONTRACEPTION
     Dosage: 20 mcg/24hr, CONT
     Route: 015
     Dates: start: 20120601, end: 20121025
  2. OCELLA [Concomitant]
     Dosage: 1 DF, QD
     Route: 048
  3. GARDASIL [Concomitant]

REACTIONS (6)
  - Vaginal haemorrhage [None]
  - Genital haemorrhage [None]
  - Fatigue [None]
  - Metrorrhagia [None]
  - Acne [None]
  - Weight increased [None]
